FAERS Safety Report 7897512-5 (Version None)
Quarter: 2011Q4

REPORT INFORMATION
  Report Type: 
  Country: None (occurrence: None)
  Receive Date: 20111107
  Receipt Date: 20111102
  Transmission Date: 20120403
  Serious: Yes (Other)
  Sender: FDA-Public Use
  Company Number: US-PFIZER INC-2011268905

PATIENT
  Age: 56 Year
  Sex: Female

DRUGS (6)
  1. PROTONIX [Suspect]
     Dosage: UNK
  2. LACTULOSE [Concomitant]
     Dosage: UNK
  3. PLAVIX [Suspect]
     Dosage: 75 MG, DAILY
     Route: 048
  4. FUROSEMIDE [Concomitant]
     Dosage: UNK
  5. LISINOPRIL [Concomitant]
     Dosage: UNK
  6. NARCAN [Concomitant]
     Dosage: UNK

REACTIONS (2)
  - INCORRECT DOSE ADMINISTERED [None]
  - ENDOTRACHEAL INTUBATION [None]
